FAERS Safety Report 11190333 (Version 1)
Quarter: 2015Q2

REPORT INFORMATION
  Report Type: Spontaneous
  Country: FR (occurrence: FR)
  Receive Date: 20150615
  Receipt Date: 20150615
  Transmission Date: 20150821
  Serious: Yes (Other)
  Sender: FDA-Public Use
  Company Number: FR-BAXTER-2015BAX030973

PATIENT
  Age: 90 Year
  Sex: Female

DRUGS (1)
  1. GLUCOSE A 5 POUR CENT BAXTER, SOLUTION POUR PERFUSION [Suspect]
     Active Substance: DEXTROSE
     Indication: DEHYDRATION
     Route: 058
     Dates: start: 20140926, end: 20141001

REACTIONS (2)
  - Erysipelas [Recovered/Resolved]
  - Infusion site reaction [Recovered/Resolved]

NARRATIVE: CASE EVENT DATE: 20141001
